FAERS Safety Report 8335224-4 (Version None)
Quarter: 2012Q2

REPORT INFORMATION
  Report Type: 
  Country: None (occurrence: None)
  Receive Date: 20120503
  Receipt Date: 20120424
  Transmission Date: 20120825
  Serious: Yes (Hospitalization)
  Sender: FDA-Public Use
  Company Number: JP-B.I. PHARMACEUTICALS,INC./RIDGEFIELD-2012-BP-01170NB

PATIENT
  Sex: Female
  Weight: 53.3 kg

DRUGS (11)
  1. LIPITOR [Concomitant]
     Dosage: 5 MG
     Route: 048
     Dates: end: 20110616
  2. RABEPRAZOLE SODIUM [Concomitant]
     Dosage: 10 MG
     Route: 048
     Dates: end: 20110616
  3. MYONAL [Concomitant]
     Route: 048
     Dates: end: 20110616
  4. VITAMIN B12 [Concomitant]
     Route: 048
     Dates: end: 20110616
  5. NORVASC [Concomitant]
     Indication: HYPERTENSION
     Dosage: 10 MG
     Route: 048
     Dates: end: 20110616
  6. VESICARE [Concomitant]
     Dosage: 5 MG
     Route: 048
     Dates: end: 20110616
  7. TELMISARTAN AND HYDROCHLOROTHIAZIDE [Suspect]
     Indication: HYPERTENSION
     Route: 048
     Dates: start: 20100824, end: 20110616
  8. FERROUS CITRATE [Concomitant]
     Dosage: 100 MG
     Route: 048
     Dates: end: 20110616
  9. KREMEZIN [Concomitant]
     Dosage: 6 G
     Route: 048
     Dates: end: 20110616
  10. DOXAZOSIN MESYLATE [Concomitant]
     Indication: HYPERTENSION
     Dosage: 2 MG
     Route: 048
     Dates: end: 20110616
  11. ARGAMATE [Concomitant]
     Dosage: 50 G
     Route: 048
     Dates: end: 20110616

REACTIONS (4)
  - CARDIAC FAILURE CONGESTIVE [None]
  - HYPERKALAEMIA [None]
  - HYPERURICAEMIA [None]
  - RENAL FAILURE CHRONIC [None]
